FAERS Safety Report 23112140 (Version 1)
Quarter: 2023Q4

REPORT INFORMATION
  Report Type: Spontaneous
  Country: ES (occurrence: ES)
  Receive Date: 20231026
  Receipt Date: 20231026
  Transmission Date: 20240109
  Serious: Yes (Other)
  Sender: FDA-Public Use
  Company Number: ES-BEH-2023164686

PATIENT
  Age: 17 Year

DRUGS (2)
  1. HAEMATE P [Suspect]
     Active Substance: ANTIHEMOPHILIC FACTOR HUMAN
     Indication: Von Willebrand^s disease
     Dosage: UNK, PRN
     Route: 065
  2. HAEMATE P [Suspect]
     Active Substance: ANTIHEMOPHILIC FACTOR HUMAN
     Dosage: 40 INTERNATIONAL UNIT/KILOGRAM, BIW
     Route: 065

REACTIONS (4)
  - Haemarthrosis [Unknown]
  - Pain [Unknown]
  - Arthropathy [Unknown]
  - Haemarthrosis [Unknown]
